FAERS Safety Report 20321447 (Version 1)
Quarter: 2022Q1

REPORT INFORMATION
  Report Type: Spontaneous
  Country: GB (occurrence: GB)
  Receive Date: 20220111
  Receipt Date: 20220111
  Transmission Date: 20220423
  Serious: Yes (Disabling)
  Sender: FDA-Public Use
  Company Number: None

PATIENT
  Age: 73 Year
  Sex: Male
  Weight: 127.91 kg

DRUGS (9)
  1. ATORVASTATIN [Suspect]
     Active Substance: ATORVASTATIN
     Indication: Cerebrovascular accident
     Dosage: 80MG
     Route: 048
     Dates: start: 201904, end: 202111
  2. ASPIRIN [Concomitant]
     Active Substance: ASPIRIN
  3. SERTRALINE [Concomitant]
     Active Substance: SERTRALINE HYDROCHLORIDE
  4. TELMISARTAN [Concomitant]
     Active Substance: TELMISARTAN
  5. INSULIN NOS [Concomitant]
     Active Substance: INSULIN NOS
  6. MEMANTINE [Concomitant]
     Active Substance: MEMANTINE
  7. DONEPEZIL [Concomitant]
     Active Substance: DONEPEZIL
  8. CHOLECALCIFEROL [Concomitant]
     Active Substance: CHOLECALCIFEROL
  9. MELATONIN [Concomitant]
     Active Substance: MELATONIN

REACTIONS (4)
  - Condition aggravated [Unknown]
  - Agitation [Unknown]
  - Anger [Unknown]
  - Disturbance in attention [Unknown]

NARRATIVE: CASE EVENT DATE: 20210201
